FAERS Safety Report 7273735-3 (Version None)
Quarter: 2010Q4

REPORT INFORMATION
  Report Type: 
  Country: None (occurrence: None)
  Receive Date: 20101201
  Receipt Date: 20101019
  Transmission Date: 20110411
  Serious: Yes (Hospitalization)
  Sender: FDA-Public Use
  Company Number: 311455

PATIENT
  Age: 15 Year
  Sex: Female
  Weight: 63.5 kg

DRUGS (3)
  1. NOVOLOG [Suspect]
     Indication: TYPE 1 DIABETES MELLITUS
     Dosage: SUBCUTANEOUS, 80 U, SUBCUTANEOUS, 30 U, SUBCUTANEOUS
     Route: 058
     Dates: start: 20030101, end: 20100701
  2. NOVOLOG [Suspect]
     Indication: TYPE 1 DIABETES MELLITUS
     Dosage: SUBCUTANEOUS, 80 U, SUBCUTANEOUS, 30 U, SUBCUTANEOUS
     Route: 058
     Dates: start: 20100702, end: 20100702
  3. NOVOLOG [Suspect]
     Indication: TYPE 1 DIABETES MELLITUS
     Dosage: SUBCUTANEOUS, 80 U, SUBCUTANEOUS, 30 U, SUBCUTANEOUS
     Route: 058
     Dates: start: 20100701

REACTIONS (5)
  - BLOOD GLUCOSE INCREASED [None]
  - DRUG INEFFECTIVE [None]
  - DYSPNOEA [None]
  - MALAISE [None]
  - PRESYNCOPE [None]
